FAERS Safety Report 7744471-1 (Version None)
Quarter: 2011Q3

REPORT INFORMATION
  Report Type: 
  Country: None (occurrence: None)
  Receive Date: 20110912
  Receipt Date: 20110907
  Transmission Date: 20111222
  Serious: Yes (Other)
  Sender: FDA-Public Use
  Company Number: CHPA2011US12141

PATIENT
  Age: 59 Year
  Sex: Male

DRUGS (5)
  1. DRUG THERAPY NOS [Concomitant]
     Dosage: UNK, UNK
  2. VITAMINS NOS [Concomitant]
     Dosage: UNK, UNK
  3. DRUG THERAPY NOS [Concomitant]
     Indication: BACK PAIN
     Dosage: UNK, UNK
  4. NICOTINE [Suspect]
     Indication: SMOKING CESSATION THERAPY
     Dosage: 21 MG, QD
     Route: 062
     Dates: start: 20100901, end: 20100901
  5. DRUG THERAPY NOS [Concomitant]
     Indication: BLOOD PRESSURE
     Dosage: UNK, UNK

REACTIONS (2)
  - STENT PLACEMENT [None]
  - DEVICE OCCLUSION [None]
